FAERS Safety Report 23683889 (Version 1)
Quarter: 2024Q1

REPORT INFORMATION
  Report Type: Spontaneous
  Country: US (occurrence: None)
  Receive Date: 20240328
  Receipt Date: 20240328
  Transmission Date: 20240409
  Serious: Yes (Hospitalization)
  Sender: FDA-Public Use
  Company Number: None

PATIENT
  Sex: Female

DRUGS (1)
  1. TYMLOS [Suspect]
     Active Substance: ABALOPARATIDE
     Dosage: FREQUENCY : DAILY;?
     Route: 058

REACTIONS (6)
  - Nephrolithiasis [None]
  - Hypercalcaemia [None]
  - Urinary tract infection [None]
  - Bacteraemia [None]
  - Endocarditis [None]
  - Therapy interrupted [None]
